FAERS Safety Report 24839360 (Version 1)
Quarter: 2025Q1

REPORT INFORMATION
  Report Type: Spontaneous
  Country: IL (occurrence: IL)
  Receive Date: 20250114
  Receipt Date: 20250114
  Transmission Date: 20250409
  Serious: No
  Sender: ALKEM
  Company Number: IL-ALKEM LABORATORIES LIMITED-IL-ALKEM-2024-13680

PATIENT

DRUGS (1)
  1. CAPECITABINE [Suspect]
     Active Substance: CAPECITABINE
     Indication: Breast cancer metastatic
     Route: 065

REACTIONS (1)
  - Hypertriglyceridaemia [Unknown]
